FAERS Safety Report 5198074-6 (Version None)
Quarter: 2006Q4

REPORT INFORMATION
  Report Type: 
  Country: None (occurrence: None)
  Receive Date: 20061228
  Receipt Date: 20061218
  Transmission Date: 20070319
  Serious: Yes (Hospitalization)
  Sender: FDA-Public Use
  Company Number: 15386

PATIENT
  Sex: Female
  Weight: 57.4 kg

DRUGS (2)
  1. CYTARABINE [Suspect]
     Indication: ACUTE MYELOID LEUKAEMIA
     Dates: start: 20061117, end: 20061121
  2. CEP-701 [Suspect]
     Indication: ACUTE MYELOID LEUKAEMIA
     Dates: start: 20061124

REACTIONS (1)
  - FEBRILE NEUTROPENIA [None]
